FAERS Safety Report 10602868 (Version 1)
Quarter: 2014Q4

REPORT INFORMATION
  Report Type: Spontaneous
  Country: US (occurrence: US)
  Receive Date: 20141124
  Receipt Date: 20141124
  Transmission Date: 20150529
  Serious: Yes (Other)
  Sender: FDA-Public Use
  Company Number: US-TEVA-523772USA

PATIENT
  Sex: Male
  Weight: 87.17 kg

DRUGS (12)
  1. COREG [Concomitant]
     Active Substance: CARVEDILOL
     Dosage: 80 MILLIGRAM DAILY;
  2. AZILECT [Suspect]
     Active Substance: RASAGILINE MESYLATE
     Indication: TREMOR
     Dates: start: 2012, end: 2012
  3. AZILECT [Suspect]
     Active Substance: RASAGILINE MESYLATE
     Dates: start: 20141007, end: 20141009
  4. INSPRA [Concomitant]
     Active Substance: EPLERENONE
     Dosage: 25 MILLIGRAM DAILY;
  5. AMIODARONE [Concomitant]
     Active Substance: AMIODARONE
     Dosage: 300 MILLIGRAM DAILY;
  6. AZILECT [Suspect]
     Active Substance: RASAGILINE MESYLATE
     Dates: start: 201209, end: 20121001
  7. PRADAXA [Concomitant]
     Active Substance: DABIGATRAN ETEXILATE MESYLATE
     Indication: CEREBROVASCULAR ACCIDENT PROPHYLAXIS
     Dosage: 75 MILLIGRAM DAILY;
  8. VITAMIN B12 [Concomitant]
     Active Substance: CYANOCOBALAMIN
     Indication: VITAMIN SUPPLEMENTATION
  9. ASPIRIN. [Concomitant]
     Active Substance: ASPIRIN
     Indication: CEREBROVASCULAR ACCIDENT PROPHYLAXIS
     Dosage: 81 MILLIGRAM DAILY;
  10. AZILECT [Suspect]
     Active Substance: RASAGILINE MESYLATE
     Dates: start: 20131216, end: 20140215
  11. QUINAPRIL [Concomitant]
     Active Substance: QUINAPRIL\QUINAPRIL HYDROCHLORIDE
     Dosage: 10 MILLIGRAM DAILY;
  12. FOLIC ACID. [Concomitant]
     Active Substance: FOLIC ACID

REACTIONS (8)
  - Influenza like illness [Unknown]
  - Euphoric mood [Unknown]
  - Dyspepsia [Unknown]
  - Loss of consciousness [Unknown]
  - Blood pressure abnormal [Unknown]
  - Tremor [Unknown]
  - Liver function test abnormal [Recovered/Resolved]
  - Snoring [Recovered/Resolved]

NARRATIVE: CASE EVENT DATE: 2014
